FAERS Safety Report 21298647 (Version 1)
Quarter: 2022Q3

REPORT INFORMATION
  Report Type: Spontaneous
  Country: FR (occurrence: FR)
  Receive Date: 20220906
  Receipt Date: 20220906
  Transmission Date: 20221027
  Serious: Yes (Life-Threatening, Congenital Anomaly, Other)
  Sender: FDA-Public Use
  Company Number: None

PATIENT
  Sex: Male
  Weight: 2 kg

DRUGS (5)
  1. TRASTUZUMAB [Suspect]
     Active Substance: TRASTUZUMAB
     Indication: Invasive ductal breast carcinoma
     Dosage: UNK
     Route: 064
     Dates: start: 20220302, end: 20220601
  2. CYCLOPHOSPHAMIDE [Suspect]
     Active Substance: CYCLOPHOSPHAMIDE
     Indication: Invasive ductal breast carcinoma
     Dosage: TOTAL OF 3 COURSES
     Route: 064
     Dates: start: 20211208, end: 20220119
  3. PACLITAXEL [Concomitant]
     Active Substance: PACLITAXEL
     Indication: Invasive ductal breast carcinoma
     Dosage: A COURSE EVERY WEEK IN COMBINATION WITH AN INFUSION OF TRASTUZUMAB EVERY 21 DAYS
     Route: 064
     Dates: start: 20220302, end: 20220601
  4. EPIRUBICIN [Concomitant]
     Active Substance: EPIRUBICIN
     Indication: Invasive ductal breast carcinoma
     Dosage: TOTAL OF 3 COURSES
     Route: 064
     Dates: start: 20211208, end: 20220119
  5. IBUPROFEN [Concomitant]
     Active Substance: IBUPROFEN
     Indication: Pain
     Route: 064

REACTIONS (5)
  - Maternal exposure during pregnancy [Unknown]
  - Oligohydramnios [Not Recovered/Not Resolved]
  - Pulmonary hypoplasia [Not Recovered/Not Resolved]
  - Cleft palate [Not Recovered/Not Resolved]
  - Renal hypoplasia [Not Recovered/Not Resolved]

NARRATIVE: CASE EVENT DATE: 20220608
